FAERS Safety Report 5294974-7 (Version None)
Quarter: 2007Q2

REPORT INFORMATION
  Report Type: 
  Country: None (occurrence: None)
  Receive Date: 20070412
  Receipt Date: 20070402
  Transmission Date: 20071010
  Serious: Yes (Other)
  Sender: FDA-Public Use
  Company Number: CN-ROCHE-491232

PATIENT
  Age: 48 Year
  Sex: Male
  Weight: 60 kg

DRUGS (3)
  1. CELLCEPT [Suspect]
     Indication: RENAL TRANSPLANT
     Route: 048
     Dates: start: 20050715
  2. CYCLOSPORINE [Concomitant]
     Indication: RENAL TRANSPLANT
     Route: 048
     Dates: start: 20070315
  3. PREDNISONE TAB [Concomitant]
     Indication: RENAL TRANSPLANT
     Route: 048
     Dates: start: 20050715

REACTIONS (2)
  - ARTHRALGIA [None]
  - OSTEONECROSIS [None]
